FAERS Safety Report 8221056-4 (Version None)
Quarter: 2012Q1

REPORT INFORMATION
  Report Type: 
  Country: None (occurrence: None)
  Receive Date: 20120320
  Receipt Date: 20120307
  Transmission Date: 20120608
  Serious: Yes (Other)
  Sender: FDA-Public Use
  Company Number: JP-ELI_LILLY_AND_COMPANY-JP201203002058

PATIENT
  Age: 65 Year
  Sex: Male

DRUGS (2)
  1. FORTEO [Suspect]
     Dosage: UNK, EACH EVENING
  2. FORTEO [Suspect]
     Dosage: UNK, EACH MORNING

REACTIONS (2)
  - NAUSEA [None]
  - INTESTINAL OBSTRUCTION [None]
